FAERS Safety Report 13019104 (Version 2)
Quarter: 2016Q4

REPORT INFORMATION
  Report Type: Spontaneous
  Country: US (occurrence: US)
  Receive Date: 20161212
  Receipt Date: 20161215
  Transmission Date: 20170207
  Serious: No
  Sender: FDA-Public Use
  Company Number: US-MEDA-2016120006

PATIENT
  Age: 67 Year
  Sex: Female
  Weight: 76 kg

DRUGS (1)
  1. FELBATOL [Suspect]
     Active Substance: FELBAMATE
     Indication: SEIZURE
     Route: 048
     Dates: start: 2001

REACTIONS (3)
  - Ear pain [Recovered/Resolved]
  - Malaise [Recovering/Resolving]
  - Nasopharyngitis [Recovering/Resolving]

NARRATIVE: CASE EVENT DATE: 20161205
